FAERS Safety Report 11180052 (Version 1)
Quarter: 2015Q2

REPORT INFORMATION
  Report Type: Spontaneous
  Country: US (occurrence: US)
  Receive Date: 20150611
  Receipt Date: 20150611
  Transmission Date: 20150821
  Serious: No
  Sender: FDA-Public Use
  Company Number: US-BAYER-2015-325436

PATIENT
  Age: 80 Year
  Sex: Male
  Weight: 81.63 kg

DRUGS (2)
  1. MIRALAX [Suspect]
     Active Substance: POLYETHYLENE GLYCOL 3350
     Indication: CONSTIPATION
     Dosage: DOSE1,UNK, QD
     Route: 048
     Dates: start: 20150518
  2. BABY ASPIRIN [Concomitant]
     Active Substance: ASPIRIN
     Indication: ISCHAEMIC HEART DISEASE PROPHYLAXIS
     Dosage: DOSE1, UNK, BID
     Route: 048
     Dates: start: 2012

REACTIONS (2)
  - Drug ineffective [Unknown]
  - Incorrect drug administration duration [Unknown]

NARRATIVE: CASE EVENT DATE: 20150518
